FAERS Safety Report 23068083 (Version 1)
Quarter: 2023Q4

REPORT INFORMATION
  Report Type: Spontaneous
  Country: US (occurrence: None)
  Receive Date: 20231012
  Receipt Date: 20231012
  Transmission Date: 20240109
  Serious: Yes (Other)
  Sender: FDA-Public Use
  Company Number: None

PATIENT
  Age: 22 Year

DRUGS (2)
  1. QULIPTA [Suspect]
     Active Substance: ATOGEPANT
     Dosage: FREQUENCY : DAILY;?
     Route: 048
     Dates: start: 20230926, end: 20231006
  2. QULIPTA [Suspect]
     Active Substance: ATOGEPANT
     Dosage: OTHER QUANTITY : HALF A TABLET;?FREQUENCY : TWICE A DAY;?
     Route: 048

REACTIONS (8)
  - Therapy change [None]
  - Drug intolerance [None]
  - Nausea [None]
  - Tremor [None]
  - Dizziness [None]
  - Therapy change [None]
  - Underdose [None]
  - Product dispensing issue [None]
